FAERS Safety Report 23195392 (Version 1)
Quarter: 2023Q4

REPORT INFORMATION
  Report Type: Spontaneous
  Country: FR (occurrence: FR)
  Receive Date: 20231117
  Receipt Date: 20231117
  Transmission Date: 20240109
  Serious: Yes (Hospitalization)
  Sender: FDA-Public Use
  Company Number: None

PATIENT
  Age: 73 Year
  Sex: Male
  Weight: 90.5 kg

DRUGS (7)
  1. AMOXICILLIN [Suspect]
     Active Substance: AMOXICILLIN
     Indication: Brain abscess
     Dosage: UNIT DOSE: 12 GRAM, FREQUENCY TIME : 1 DAY, DURATION : 33 DAYS
     Dates: start: 20230905, end: 20231008
  2. METRONIDAZOLE [Suspect]
     Active Substance: METRONIDAZOLE
     Indication: Brain abscess
     Dosage: UNIT DOSE: 1.5 GRAM, FREQUENCY TIME : 1 DAY, DURATION : 33 DAYS
     Dates: start: 20230905, end: 20231008
  3. BACLOFEN [Suspect]
     Active Substance: BACLOFEN
     Indication: Muscle spasticity
     Dosage: UNIT DOSE: 1 DF , FREQUENCY TIME : 1 DAY, DURATION : 33 DAYS
     Dates: start: 20231004, end: 20231006
  4. POTASSIUM CHLORIDE [Concomitant]
     Active Substance: POTASSIUM CHLORIDE
     Indication: Product used for unknown indication
     Dosage: UNIT DOSE : 1800 MG, FREQUENCY TIME: 1 DAY, THERAPY START DATE: ASKU
  5. ALFUZOSIN (HYDROCHLORIDE) [Concomitant]
     Indication: Product used for unknown indication
     Dosage: UNIT DOSE: 7.5 MG , FREQUENCY TIME : 1 DAY, THERAPY START DATE : ASKU
  6. HYDROCHLOROTHIAZIDE [Concomitant]
     Active Substance: HYDROCHLOROTHIAZIDE
     Indication: Product used for unknown indication
     Dosage: UNIT DOSE: 12.5 MG , FREQUENCY TIME : 1 DAY, THERAPY START DATE : ASKU
  7. ENOXAPARIN SODIUM [Concomitant]
     Active Substance: ENOXAPARIN SODIUM
     Indication: Product used for unknown indication
     Dosage: ENOXAPARIN SODIUM ((MAMMAL/PIG/GUTTUM MUCOSA)), UNIT DOSE: 4000 IU, FREQUENCY TIME : 1 DAY, THERAPY

REACTIONS (1)
  - Encephalopathy [Recovered/Resolved]

NARRATIVE: CASE EVENT DATE: 20231005
